FAERS Safety Report 19499712 (Version 1)
Quarter: 2021Q3

REPORT INFORMATION
  Report Type: Spontaneous
  Country: JP (occurrence: JP)
  Receive Date: 20210706
  Receipt Date: 20210706
  Transmission Date: 20211014
  Serious: Yes (Other)
  Sender: FDA-Public Use
  Company Number: JP-TAKEDA-2021TUS042043

PATIENT
  Sex: Female

DRUGS (3)
  1. FEBURIC [Suspect]
     Active Substance: FEBUXOSTAT
     Dosage: UNK
     Route: 048
  2. FEBURIC [Suspect]
     Active Substance: FEBUXOSTAT
     Dosage: UNK
     Route: 048
  3. FEBURIC [Suspect]
     Active Substance: FEBUXOSTAT
     Indication: BLOOD URIC ACID INCREASED
     Dosage: UNK
     Route: 048
     Dates: start: 2018

REACTIONS (3)
  - Thyroid function test abnormal [Unknown]
  - Arrhythmia [Recovered/Resolved]
  - Palpitations [Recovered/Resolved]
